FAERS Safety Report 9638668 (Version 2)
Quarter: 2014Q1

REPORT INFORMATION
  Report Type: Spontaneous
  Country: US (occurrence: US)
  Receive Date: 20131022
  Receipt Date: 20140122
  Transmission Date: 20141002
  Serious: No
  Sender: FDA-Public Use
  Company Number: US-BRISTOL-MYERS SQUIBB COMPANY-19356799

PATIENT
  Age: 79 Year
  Sex: Male

DRUGS (5)
  1. ELIQUIS [Suspect]
     Indication: ATRIAL FIBRILLATION
     Route: 048
     Dates: start: 201309, end: 201309
  2. HYDROCODONE [Concomitant]
  3. LISINOPRIL [Concomitant]
  4. AMLODIPINE [Concomitant]
  5. NITROGLYCERIN [Concomitant]

REACTIONS (2)
  - Abdominal discomfort [Recovered/Resolved]
  - Drug intolerance [Recovered/Resolved]
